FAERS Safety Report 5400323-3 (Version None)
Quarter: 2007Q3

REPORT INFORMATION
  Report Type: 
  Country: None (occurrence: None)
  Receive Date: 20070730
  Receipt Date: 20070718
  Transmission Date: 20080115
  Serious: Yes (Disabling)
  Sender: FDA-Public Use
  Company Number: HQWYE853029JUN07

PATIENT
  Sex: Female
  Weight: 59.02 kg

DRUGS (4)
  1. EFFEXOR [Suspect]
     Indication: ANXIETY
     Dosage: UNKNOWN STARTING DOSE - CURRENTLY WEANING OFF - TAPERING BY 5 MG EVERY 3 WEEKS
     Route: 048
     Dates: start: 20030101
  2. EFFEXOR [Suspect]
     Indication: DEPRESSION
  3. MULTIVITAMIN ^LAPPE^ [Concomitant]
  4. ORTHO TRI-CYCLEN [Concomitant]
     Indication: CONTRACEPTION

REACTIONS (15)
  - AGITATION [None]
  - CHILLS [None]
  - DIZZINESS [None]
  - DRUG DOSE OMISSION [None]
  - DRUG WITHDRAWAL SYNDROME [None]
  - FATIGUE [None]
  - INFLUENZA LIKE ILLNESS [None]
  - LOSS OF EMPLOYMENT [None]
  - MALAISE [None]
  - NAUSEA [None]
  - PARAESTHESIA [None]
  - RETCHING [None]
  - TREMOR [None]
  - VOMITING [None]
  - WEIGHT INCREASED [None]
